FAERS Safety Report 4280586-0 (Version None)
Quarter: 2004Q1

REPORT INFORMATION
  Report Type: 
  Country: None (occurrence: None)
  Receive Date: 20040128
  Receipt Date: 20040115
  Transmission Date: 20041129
  Serious: Yes (Death, Life-Threatening, Hospitalization)
  Sender: FDA-Public Use
  Company Number: HYDM20040001

PATIENT
  Age: 40 Year
  Sex: Female

DRUGS (2)
  1. HYDROMORPHONE HCL [Suspect]
     Indication: PAIN
     Dosage: TABS IV
     Route: 042
  2. METHADONE HCL [Suspect]
     Indication: PAIN

REACTIONS (9)
  - EMPHYSEMA [None]
  - ENTEROCOCCAL SEPSIS [None]
  - PLEURAL ADHESION [None]
  - PULMONARY ARTERIAL PRESSURE INCREASED [None]
  - PULMONARY CONGESTION [None]
  - PULMONARY EMBOLISM [None]
  - PULMONARY GRANULOMA [None]
  - PULMONARY OEDEMA [None]
  - RESPIRATORY FAILURE [None]
